FAERS Safety Report 4903488-2 (Version None)
Quarter: 2006Q1

REPORT INFORMATION
  Report Type: 
  Country: None (occurrence: None)
  Receive Date: 20060203
  Receipt Date: 20060119
  Transmission Date: 20060701
  Serious: Yes (Hospitalization, Other)
  Sender: FDA-Public Use
  Company Number: 2005-02136

PATIENT
  Age: 61 Year
  Sex: Male
  Weight: 122.4 kg

DRUGS (5)
  1. VELCADE [Suspect]
     Indication: NON-HODGKIN'S LYMPHOMA
     Dosage: 3.20 MG, IV BOLUS
     Route: 040
     Dates: start: 20050919, end: 20051103
  2. FLAGYL [Concomitant]
  3. LORAZEPAM [Concomitant]
  4. SYNTHROID [Concomitant]
  5. AVAPRO [Concomitant]

REACTIONS (3)
  - CLOSTRIDIUM COLITIS [None]
  - ENTEROCOLITIS [None]
  - SMALL INTESTINAL OBSTRUCTION [None]
